FAERS Safety Report 6984682-6 (Version None)
Quarter: 2010Q3

REPORT INFORMATION
  Report Type: 
  Country: None (occurrence: None)
  Receive Date: 20100915
  Receipt Date: 20100904
  Transmission Date: 20110219
  Serious: Yes (Hospitalization)
  Sender: FDA-Public Use
  Company Number: JP-NOVOPROD-309109

PATIENT
  Sex: Female
  Weight: 58.8 kg

DRUGS (4)
  1. IDEG FLEXPEN [Suspect]
     Indication: TYPE 1 DIABETES MELLITUS
     Dosage: 16 U, QD
     Route: 058
     Dates: start: 20100313, end: 20100516
  2. IDEG FLEXPEN [Suspect]
     Dosage: UNK
     Dates: start: 20100525
  3. NOVORAPID FLEXPEN [Suspect]
     Indication: TYPE 1 DIABETES MELLITUS
     Dosage: 22 U, QD
     Route: 058
     Dates: start: 20100513, end: 20100517
  4. NOVORAPID FLEXPEN [Suspect]
     Dosage: UNK
     Dates: start: 20100525

REACTIONS (2)
  - KETOSIS [None]
  - PYELONEPHRITIS [None]
